FAERS Safety Report 6261743-0 (Version None)
Quarter: 2009Q3

REPORT INFORMATION
  Report Type: 
  Country: None (occurrence: None)
  Receive Date: 20090709
  Receipt Date: 20090626
  Transmission Date: 20100115
  Serious: Yes (Other)
  Sender: FDA-Public Use
  Company Number: US-TYCO HEALTHCARE/MALLINCKRODT-T200800957

PATIENT

DRUGS (23)
  1. OPTIMARK [Suspect]
     Indication: NUCLEAR MAGNETIC RESONANCE IMAGING
     Dosage: UNK, SINGLE
     Route: 042
     Dates: start: 20050307, end: 20050307
  2. OPTIMARK [Suspect]
     Dosage: UNK, SINGLE
     Route: 042
     Dates: start: 20061215, end: 20061215
  3. OPTIMARK [Suspect]
     Dosage: 15 ML (CC), SINGLE
     Dates: start: 20070119, end: 20070119
  4. OPTIMARK [Suspect]
     Dosage: 15 ML, SINGLE
     Dates: start: 20070330, end: 20070330
  5. OPTIMARK [Suspect]
     Dosage: 15 ML, SINGLE
     Dates: start: 20070330, end: 20070330
  6. ZOLPIDEM [Concomitant]
     Dosage: 5 MG, UNK
  7. TRAZODONE HYDROCHLORIDE [Concomitant]
     Dosage: 100 MG, UNK
  8. MORPHINE SULFATE [Concomitant]
     Dosage: 15 MG, UNK
  9. METHYLPREDNISOLONE [Concomitant]
     Dosage: 4 MG, UNK
  10. METHYLPREDNISOLONE [Concomitant]
     Dosage: 8 MG, UNK
  11. LYRICA [Concomitant]
     Dosage: 50 MG, UNK
  12. LYRICA [Concomitant]
     Dosage: 150 MG, UNK
  13. FENTANYL [Concomitant]
     Dosage: 75 UNK, UNK
  14. DOXYCYCLINE HYCLATE [Concomitant]
     Dosage: 100 MG, UNK
  15. OXYCODONE HCL EXTENDED-RELEASE [Concomitant]
     Dosage: 40 MG, QD
  16. HYDROMORPHONE HYDROCHLORIDE [Concomitant]
     Dosage: 4 MG, UNK
  17. ALPRAZOLAM [Concomitant]
     Dosage: 0.5 MG, UNK
  18. ACETAMINOPHEN AND HYDROCODONE BITARTRATE [Concomitant]
  19. PHOSLO [Concomitant]
     Dosage: 667 MG, UNK
  20. RENAGEL                            /01459901/ [Concomitant]
     Dosage: 800 MG, UNK
  21. GABAPENTIN [Concomitant]
     Dosage: 600 MG, UNK
  22. FENTANYL [Concomitant]
     Dosage: Q72H
  23. OXYCODONE [Concomitant]
     Dosage: 5 MG, UNK

REACTIONS (2)
  - NEPHROGENIC SYSTEMIC FIBROSIS [None]
  - OFF LABEL USE [None]
